FAERS Safety Report 6701776-0 (Version None)
Quarter: 2010Q2

REPORT INFORMATION
  Report Type: 
  Country: None (occurrence: None)
  Receive Date: 20100429
  Receipt Date: 20100426
  Transmission Date: 20101027
  Serious: Yes (Other)
  Sender: FDA-Public Use
  Company Number: PHEH2010US02873

PATIENT
  Age: 74 Year
  Sex: Female

DRUGS (14)
  1. STALEVO 100 [Suspect]
     Indication: PARKINSON'S DISEASE
     Dosage: 150 MG, QID
     Route: 048
  2. VITAMIN C [Concomitant]
     Dosage: UNK, UNK
  3. SELEGILINE HCL [Concomitant]
     Dosage: UNK, UNK
  4. ENALAPRIL MALEATE [Concomitant]
     Dosage: UNK, UNK
  5. SIMVASTATIN [Concomitant]
     Dosage: UNK, UNK
  6. COLACE [Concomitant]
     Dosage: UNK, UNK
  7. SULAR [Concomitant]
     Dosage: UNK, UNK
  8. GLUCOSAMINE [Concomitant]
     Dosage: UNK, UNK
  9. CELEBREX [Concomitant]
     Dosage: UNK, UNK
  10. MULTIVITAMINS, OTHER COMBINATIONS [Concomitant]
     Dosage: UNK, UNK
  11. SYNTHROID [Concomitant]
     Dosage: UNK, UNK
  12. DETROL [Concomitant]
     Dosage: UNK, UNK
  13. METOLAZONE [Concomitant]
     Dosage: UNK, UNK
  14. TYLENOL-500 [Concomitant]
     Dosage: UNK, PRN

REACTIONS (3)
  - DYSPHAGIA [None]
  - SURGERY [None]
  - TONGUE NEOPLASM MALIGNANT STAGE UNSPECIFIED [None]
